FAERS Safety Report 8745722 (Version 3)
Quarter: 2013Q2

REPORT INFORMATION
  Report Type: Spontaneous
  Country: NL (occurrence: NL)
  Receive Date: 20120827
  Receipt Date: 20130607
  Transmission Date: 20140414
  Serious: No
  Sender: FDA-Public Use
  Company Number: NL-AMGEN-NLDSP2012052952

PATIENT
  Age: 49 Year
  Sex: Female

DRUGS (1)
  1. ENBREL [Suspect]
     Indication: PSORIATIC ARTHROPATHY
     Dosage: 50 MG, WEEKLY
     Dates: start: 20120521

REACTIONS (3)
  - Injection site reaction [Recovering/Resolving]
  - Injection site erythema [Recovering/Resolving]
  - Injection site warmth [Recovering/Resolving]
